FAERS Safety Report 20758689 (Version 1)
Quarter: 2022Q2

REPORT INFORMATION
  Report Type: Spontaneous
  Country: US (occurrence: US)
  Receive Date: 20220427
  Receipt Date: 20220427
  Transmission Date: 20220721
  Serious: No
  Sender: FDA-Public Use
  Company Number: US-PFIZER INC-202101482937

PATIENT
  Age: 39 Year
  Sex: Male
  Weight: 88 kg

DRUGS (1)
  1. CHANTIX [Suspect]
     Active Substance: VARENICLINE TARTRATE
     Indication: Smoking cessation therapy
     Dosage: 1 MG

REACTIONS (8)
  - Drug ineffective [Unknown]
  - Personality change [Unknown]
  - Anger [Unknown]
  - Irritability [Unknown]
  - Cognitive disorder [Unknown]
  - Hostility [Unknown]
  - Aggression [Unknown]
  - Recalled product administered [Unknown]
